FAERS Safety Report 23888318 (Version 3)
Quarter: 2024Q2

REPORT INFORMATION
  Report Type: Spontaneous
  Country: DE (occurrence: DE)
  Receive Date: 20240523
  Receipt Date: 20240603
  Transmission Date: 20240716
  Serious: Yes (Hospitalization)
  Sender: FDA-Public Use
  Company Number: DE-ROCHE-3096753

PATIENT
  Age: 38 Year
  Sex: Female
  Weight: 61 kg

DRUGS (16)
  1. KESIMPTA [Suspect]
     Active Substance: OFATUMUMAB
     Indication: Relapsing multiple sclerosis
     Dosage: 20 MG
     Route: 058
     Dates: start: 20240307
  2. OCRELIZUMAB [Suspect]
     Active Substance: OCRELIZUMAB
     Indication: Relapsing multiple sclerosis
     Dosage: 600 MG, 6 MONTHS
     Route: 042
     Dates: start: 20190916, end: 20220120
  3. OCRELIZUMAB [Suspect]
     Active Substance: OCRELIZUMAB
     Dosage: 300 MG, Q2W
     Route: 042
     Dates: start: 20190220, end: 20190307
  4. OCRELIZUMAB [Suspect]
     Active Substance: OCRELIZUMAB
     Dosage: 600 MG, 6 MONTHS
     Route: 042
     Dates: start: 20230130, end: 20230801
  5. CHLORMADINONE ACETATE\ETHINYL ESTRADIOL [Concomitant]
     Active Substance: CHLORMADINONE ACETATE\ETHINYL ESTRADIOL
     Indication: Contraception
     Dosage: UNK UNK, QD
     Route: 065
     Dates: start: 201805
  6. PREDNISOLONE [Concomitant]
     Active Substance: PREDNISOLONE
     Indication: Premedication
     Dosage: 125 MG, BIW
     Route: 065
     Dates: start: 20190220, end: 20190307
  7. PREDNISOLONE [Concomitant]
     Active Substance: PREDNISOLONE
     Dosage: 125 MG, 6 MONTHS
     Route: 065
     Dates: start: 20190916
  8. DEQUALINIUM CHLORIDE [Concomitant]
     Active Substance: DEQUALINIUM CHLORIDE
     Indication: Bacterial vaginosis
     Dosage: 10 MG, QW (END DATE IS ONGOING)
     Route: 065
     Dates: start: 20210609
  9. IBUPROFEN [Concomitant]
     Active Substance: IBUPROFEN
     Indication: Headache
     Dosage: 600 MG
     Route: 065
     Dates: start: 201703
  10. ACETAMINOPHEN [Concomitant]
     Active Substance: ACETAMINOPHEN
     Indication: Product used for unknown indication
     Dosage: 500 MG, PRN (DEFINITION OF THE INTERVAL: AS REQUIRED) (END DATE IS UNKNOWN)
     Route: 065
     Dates: start: 20190307
  11. DONTISOLON [Concomitant]
     Indication: Gingivitis
     Dosage: UNK, QD
     Route: 065
     Dates: start: 20191029, end: 20191111
  12. CHOLECALCIFEROL [Concomitant]
     Active Substance: CHOLECALCIFEROL
     Indication: Vitamin D deficiency
     Dosage: 20000 IU, QW (END DATE IS ONGOING)
     Route: 065
     Dates: start: 20150203
  13. PANTOPRAZOLE SODIUM [Concomitant]
     Active Substance: PANTOPRAZOLE SODIUM
     Indication: Product used for unknown indication
     Dosage: 40 MG
     Route: 065
     Dates: start: 20240402
  14. TILIDINE [Concomitant]
     Active Substance: TILIDINE
     Indication: Product used for unknown indication
     Dosage: UNK, PRN (DEFINITION OF THE INTERVAL: AS REQUIRED) (END DATE IS ONGOING)
     Route: 065
     Dates: start: 20240402
  15. DIMETHINDENE MALEATE [Concomitant]
     Active Substance: DIMETHINDENE MALEATE
     Indication: Premedication
     Dosage: 1 MG, BIW
     Route: 065
     Dates: start: 20190220, end: 20190307
  16. DIMETHINDENE MALEATE [Concomitant]
     Active Substance: DIMETHINDENE MALEATE
     Dosage: 1 MG, 6 MONTHS (END DATE IS ONGOING)
     Route: 065
     Dates: start: 20190916

REACTIONS (9)
  - Pneumonia [Recovered/Resolved]
  - Bronchitis [Recovered/Resolved]
  - Rhinitis [Recovered/Resolved]
  - Influenza like illness [Recovered/Resolved]
  - Influenza like illness [Recovered/Resolved]
  - Respiratory tract infection [Recovered/Resolved]
  - COVID-19 [Recovered/Resolved]
  - SARS-CoV-2 antibody test negative [Not Recovered/Not Resolved]
  - Rib fracture [Not Recovered/Not Resolved]

NARRATIVE: CASE EVENT DATE: 20240307
